FAERS Safety Report 5866971-1 (Version None)
Quarter: 2008Q3

REPORT INFORMATION
  Report Type: 
  Country: None (occurrence: None)
  Receive Date: 20080828
  Receipt Date: 20080828
  Transmission Date: 20090109
  Serious: Yes (Hospitalization)
  Sender: FDA-Public Use
  Company Number: None

PATIENT
  Sex: Female
  Weight: 64.4 kg

DRUGS (3)
  1. CARBOPLATIN [Suspect]
     Dosage: 355 MG
  2. TAXOL [Suspect]
     Dosage: 292 MG
  3. NEULASTA [Suspect]

REACTIONS (7)
  - ASTHENIA [None]
  - CULTURE URINE POSITIVE [None]
  - DECREASED APPETITE [None]
  - DEHYDRATION [None]
  - DIARRHOEA [None]
  - ESCHERICHIA INFECTION [None]
  - WHITE BLOOD CELL COUNT INCREASED [None]
